FAERS Safety Report 15160941 (Version 5)
Quarter: 2018Q3

REPORT INFORMATION
  Report Type: Spontaneous
  Country: IT (occurrence: IT)
  Receive Date: 20180718
  Receipt Date: 20180816
  Transmission Date: 20181010
  Serious: Yes (Other)
  Sender: FDA-Public Use
  Company Number: IT-ALLERGAN-1835497US

PATIENT
  Age: 61 Year
  Sex: Male

DRUGS (14)
  1. TRIATEC HCT [Concomitant]
     Active Substance: HYDROCHLOROTHIAZIDE\RAMIPRIL
     Indication: PRODUCT USED FOR UNKNOWN INDICATION
     Dosage: 15 MG, QD
     Route: 065
  2. LANSOPRAZOLE. [Concomitant]
     Active Substance: LANSOPRAZOLE
     Indication: PRODUCT USED FOR UNKNOWN INDICATION
     Dosage: 30 MG, QD
     Route: 065
  3. ESCITALOPRAM OXALATE ? BP [Suspect]
     Active Substance: ESCITALOPRAM OXALATE
     Indication: MENTAL DISORDER
  4. DULOXETINE. [Suspect]
     Active Substance: DULOXETINE
     Indication: MAJOR DEPRESSION
     Dosage: UNK
     Route: 065
  5. SIMVASTATIN. [Concomitant]
     Active Substance: SIMVASTATIN
     Indication: PRODUCT USED FOR UNKNOWN INDICATION
     Dosage: 20 MG, QD
     Route: 065
  6. SERTRALINE HYDROCHLORIDE. [Suspect]
     Active Substance: SERTRALINE HYDROCHLORIDE
     Indication: MENTAL DISORDER
     Dosage: 100 MG, QD
     Route: 048
  7. CORDARONE [Concomitant]
     Active Substance: AMIODARONE HYDROCHLORIDE
     Indication: PRODUCT USED FOR UNKNOWN INDICATION
     Dosage: UNK
     Route: 065
  8. ESCITALOPRAM OXALATE ? BP [Suspect]
     Active Substance: ESCITALOPRAM OXALATE
     Indication: MAJOR DEPRESSION
     Dosage: 20 MG, QD
     Route: 065
  9. DULOXETINE. [Suspect]
     Active Substance: DULOXETINE
     Indication: MENTAL DISORDER
     Dosage: 60 MG, QD
     Route: 065
  10. EZETIMIBE. [Concomitant]
     Active Substance: EZETIMIBE
     Indication: PRODUCT USED FOR UNKNOWN INDICATION
     Dosage: 10 MG, QD
     Route: 065
  11. COUMADIN [Concomitant]
     Active Substance: WARFARIN SODIUM
     Indication: PRODUCT USED FOR UNKNOWN INDICATION
     Dosage: UNK
     Route: 065
  12. LORAZEPAM. [Suspect]
     Active Substance: LORAZEPAM
     Indication: MENTAL DISORDER
     Dosage: 2.5 MG, QD
     Route: 048
  13. ALPRAZOLAM. [Concomitant]
     Active Substance: ALPRAZOLAM
     Indication: PRODUCT USED FOR UNKNOWN INDICATION
     Dosage: 2 MG, QD
     Route: 065
  14. WARFARIN SODIUM. [Concomitant]
     Active Substance: WARFARIN SODIUM
     Indication: PRODUCT USED FOR UNKNOWN INDICATION
     Route: 065

REACTIONS (11)
  - Social avoidant behaviour [Recovered/Resolved]
  - Major depression [Recovered/Resolved]
  - Self esteem decreased [Recovered/Resolved]
  - Abulia [Recovered/Resolved]
  - Decreased appetite [Recovered/Resolved]
  - Drug ineffective [Unknown]
  - Sexual dysfunction [Recovered/Resolved]
  - Anxiety [Recovering/Resolving]
  - Apathy [Recovered/Resolved]
  - Weight increased [Recovered/Resolved]
  - Anhedonia [Recovered/Resolved]

NARRATIVE: CASE EVENT DATE: 201606
